FAERS Safety Report 12632965 (Version 2)
Quarter: 2016Q3

REPORT INFORMATION
  Report Type: Spontaneous
  Country: US (occurrence: US)
  Receive Date: 20160808
  Receipt Date: 20160808
  Transmission Date: 20161109
  Serious: No
  Sender: FDA-Public Use
  Company Number: US-BEH-2016057790

PATIENT
  Sex: Male
  Weight: 22 kg

DRUGS (6)
  1. VENTOLIN HFA [Concomitant]
     Active Substance: ALBUTEROL SULFATE
  2. HIZENTRA [Suspect]
     Active Substance: HUMAN IMMUNOGLOBULIN G
     Indication: SPINOCEREBELLAR ATAXIA
     Route: 058
  3. AMOXICILLIN. [Concomitant]
     Active Substance: AMOXICILLIN
  4. VERAMYST [Concomitant]
     Active Substance: FLUTICASONE FUROATE
  5. PREVACID [Concomitant]
     Active Substance: LANSOPRAZOLE
  6. ALBUTEROL. [Concomitant]
     Active Substance: ALBUTEROL

REACTIONS (2)
  - Respiratory tract congestion [Recovered/Resolved]
  - Pyrexia [Recovered/Resolved]
